FAERS Safety Report 23943363 (Version 1)
Quarter: 2024Q2

REPORT INFORMATION
  Report Type: Spontaneous
  Country: JP (occurrence: JP)
  Receive Date: 20240605
  Receipt Date: 20240605
  Transmission Date: 20240715
  Serious: Yes (Other)
  Sender: FDA-Public Use
  Company Number: JP-BRISTOL-MYERS SQUIBB COMPANY-2024-088718

PATIENT

DRUGS (1)
  1. ABECMA [Suspect]
     Active Substance: IDECABTAGENE VICLEUCEL
     Indication: Product used for unknown indication
     Dosage: DOSE : IN ACCORDANCE WITH RFI;     FREQ : ONE TIME
     Route: 041

REACTIONS (5)
  - Immune effector cell-associated neurotoxicity syndrome [Unknown]
  - Gastrointestinal necrosis [Unknown]
  - Septic shock [Unknown]
  - Haemophagocytic lymphohistiocytosis [Unknown]
  - Malignant neoplasm progression [Unknown]
